FAERS Safety Report 22190175 (Version 1)
Quarter: 2023Q2

REPORT INFORMATION
  Report Type: Spontaneous
  Country: US (occurrence: US)
  Receive Date: 20230410
  Receipt Date: 20230410
  Transmission Date: 20230721
  Serious: No
  Sender: FDA-Public Use
  Company Number: US-AVEO ONCOLOGY-2023-AVEO-US000008

PATIENT

DRUGS (7)
  1. FOTIVDA [Suspect]
     Active Substance: TIVOZANIB HYDROCHLORIDE
     Indication: Renal cell carcinoma
     Dosage: 1.34 MG, DAILY FOR 21 DAYS WITH 7 DAYS OFF (28-DAY CYCLE)
     Route: 048
     Dates: start: 20221207, end: 20230119
  2. CALCITRIOL [Concomitant]
     Active Substance: CALCITRIOL
     Dosage: 25 MCG
  3. IRON [Concomitant]
     Active Substance: IRON
     Dosage: 325 MG
  4. LEVOTHYROXINE [Concomitant]
     Active Substance: LEVOTHYROXINE
     Dosage: 125 MCG
  5. NIFEDIPINE [Concomitant]
     Active Substance: NIFEDIPINE
     Dosage: 30 MG
  6. VELTASSA [Concomitant]
     Active Substance: PATIROMER
     Dosage: 8.4 G
  7. VITAMIN D [Concomitant]
     Active Substance: VITAMIN D NOS
     Dosage: 50 MCG

REACTIONS (5)
  - Fatigue [Recovering/Resolving]
  - Dysphonia [Recovering/Resolving]
  - Hypersomnia [Recovering/Resolving]
  - Dyspnoea [Recovering/Resolving]
  - Tooth disorder [Recovered/Resolved]

NARRATIVE: CASE EVENT DATE: 20221201
